FAERS Safety Report 5357645-4 (Version None)
Quarter: 2007Q2

REPORT INFORMATION
  Report Type: 
  Country: None (occurrence: None)
  Receive Date: 20070614
  Receipt Date: 20070608
  Transmission Date: 20071010
  Serious: Yes (Hospitalization, Other)
  Sender: FDA-Public Use
  Company Number: US-SHR-US-2007-021655

PATIENT
  Sex: Female

DRUGS (1)
  1. YAZ [Suspect]
     Dosage: 1 TAB(S), 1X/DAY
     Route: 048
     Dates: start: 20070528, end: 20070604

REACTIONS (2)
  - POST PROCEDURAL HAEMORRHAGE [None]
  - VAGINAL HAEMORRHAGE [None]
